FAERS Safety Report 9678141 (Version 1)
Quarter: 2013Q4

REPORT INFORMATION
  Report Type: Spontaneous
  Country: US (occurrence: None)
  Receive Date: 20131107
  Receipt Date: 20131107
  Transmission Date: 20140711
  Serious: Yes (Hospitalization)
  Sender: FDA-Public Use
  Company Number: None

PATIENT
  Age: 37 Year
  Sex: Male
  Weight: 104.33 kg

DRUGS (5)
  1. WARFARIN [Suspect]
     Indication: ATRIAL FIBRILLATION
     Route: 048
     Dates: start: 20131008, end: 20131105
  2. ATENOLOL [Concomitant]
  3. LIPITOR [Concomitant]
  4. ESOMEPRAZOLE [Concomitant]
  5. ADVAIR [Concomitant]

REACTIONS (5)
  - International normalised ratio increased [None]
  - Depression [None]
  - General physical health deterioration [None]
  - Hypophagia [None]
  - Disease recurrence [None]
